FAERS Safety Report 9233970 (Version 1)
Quarter: 2013Q2

REPORT INFORMATION
  Report Type: Spontaneous
  Country: US (occurrence: US)
  Receive Date: 20130416
  Receipt Date: 20130416
  Transmission Date: 20140414
  Serious: No
  Sender: FDA-Public Use
  Company Number: US-BANPHARM-20120504

PATIENT
  Age: 82 Year
  Sex: Female
  Weight: 36.29 kg

DRUGS (3)
  1. ALEVE LIQUID GELS 220MG [Suspect]
     Indication: MYALGIA
     Dosage: 1 DF, PRN,
     Route: 048
  2. BAYER? CHEWABLE 81MG ASPIRIN CHERRY 36S [Concomitant]
     Dosage: 1 DF, QD,
     Route: 048
  3. PRESCRIPTION FOR HIGH BLOOD PRESSURE [Concomitant]

REACTIONS (3)
  - Drug ineffective [Unknown]
  - Wrong technique in drug usage process [Unknown]
  - Foreign body [Recovered/Resolved]
